FAERS Safety Report 22274123 (Version 1)
Quarter: 2023Q2

REPORT INFORMATION
  Report Type: Spontaneous
  Country: US (occurrence: None)
  Receive Date: 20230501
  Receipt Date: 20230501
  Transmission Date: 20230722
  Serious: No
  Sender: FDA-Public Use
  Company Number: None

PATIENT
  Sex: Male

DRUGS (2)
  1. AMBRISENTAN [Suspect]
     Active Substance: AMBRISENTAN
     Indication: Pulmonary arterial hypertension
     Dosage: FREQUENCY : DAILY;?
     Route: 048
  2. SILDENAFIL [Suspect]
     Active Substance: SILDENAFIL

REACTIONS (7)
  - Blood potassium increased [None]
  - Fatigue [None]
  - Dyspnoea [None]
  - Dizziness [None]
  - Nonspecific reaction [None]
  - Diabetes mellitus [None]
  - Amyloidosis [None]
